FAERS Safety Report 4388489-8 (Version None)
Quarter: 2004Q2

REPORT INFORMATION
  Report Type: 
  Country: None (occurrence: None)
  Receive Date: 20040624
  Receipt Date: 20040615
  Transmission Date: 20050107
  Serious: Yes (Death)
  Sender: FDA-Public Use
  Company Number: GB-JNJFOC-20040603734

PATIENT
  Age: 70 Year
  Sex: Male

DRUGS (7)
  1. REMICADE [Suspect]
     Indication: RHEUMATOID ARTHRITIS
     Dosage: 375 MG, INTRAVENOUS
     Route: 042
     Dates: start: 20030327, end: 20040101
  2. PREDNISOLONE [Concomitant]
  3. METHOTREXATE [Concomitant]
  4. FOLIC ACID [Concomitant]
  5. INDOMETHACIN [Concomitant]
  6. LOSEC (OMEPRAZOLE) [Concomitant]
  7. FOSAMAX [Concomitant]

REACTIONS (3)
  - CELLULITIS [None]
  - LOWER RESPIRATORY TRACT INFECTION [None]
  - PRODUCTIVE COUGH [None]
